FAERS Safety Report 18734581 (Version 1)
Quarter: 2021Q1

REPORT INFORMATION
  Report Type: Spontaneous
  Country: US (occurrence: US)
  Receive Date: 20210112
  Receipt Date: 20210112
  Transmission Date: 20210419
  Serious: Yes (Disabling, Other)
  Sender: FDA-Public Use
  Company Number: None

PATIENT
  Age: 24 Year
  Sex: Male
  Weight: 64.35 kg

DRUGS (2)
  1. FINASTERIDE TABLETS USP [Suspect]
     Active Substance: FINASTERIDE
     Indication: ALOPECIA
     Dosage: ?          QUANTITY:1 TABLET(S);?
     Route: 048
     Dates: start: 20190901, end: 20200113
  2. FOLIGAIN STIMULATING SUPPLEMENT FOR THINNING HAIR [Concomitant]

REACTIONS (4)
  - Weight increased [None]
  - Spermatozoa abnormal [None]
  - Seborrhoea [None]
  - Erectile dysfunction [None]

NARRATIVE: CASE EVENT DATE: 20200113
